FAERS Safety Report 5253032-8 (Version None)
Quarter: 2007Q1

REPORT INFORMATION
  Report Type: 
  Country: None (occurrence: None)
  Receive Date: 20061201
  Receipt Date: 20060827
  Transmission Date: 20070707
  Serious: No
  Sender: FDA-Public Use
  Company Number: 2006PV020236

PATIENT
  Age: 34 Year
  Sex: Female
  Weight: 69.8539 kg

DRUGS (2)
  1. BYETTA [Suspect]
     Indication: POLYCYSTIC OVARIES
     Dosage: 10 MCG; BID;SC
     Route: 058
     Dates: start: 20060821
  2. METFORMIN HCL [Concomitant]

REACTIONS (1)
  - NAUSEA [None]
